FAERS Safety Report 13138271 (Version 1)
Quarter: 2017Q1

REPORT INFORMATION
  Report Type: Spontaneous
  Country: US (occurrence: US)
  Receive Date: 20170123
  Receipt Date: 20170123
  Transmission Date: 20170428
  Serious: No
  Sender: FDA-Public Use
  Company Number: US-UNITED THERAPEUTICS-UNT-2016-010923

PATIENT
  Age: 70 Year
  Sex: Female
  Weight: 80.73 kg

DRUGS (3)
  1. CILOSTAZOL. [Suspect]
     Active Substance: CILOSTAZOL
     Indication: PRODUCT USED FOR UNKNOWN INDICATION
     Route: 065
  2. AMLODIPINE [Suspect]
     Active Substance: AMLODIPINE BESYLATE
     Indication: PRODUCT USED FOR UNKNOWN INDICATION
     Route: 065
  3. TYVASO [Suspect]
     Active Substance: TREPROSTINIL
     Indication: PULMONARY HYPERTENSION
     Dosage: 18-54 MICROGRAMS, QID
     Dates: start: 20160630

REACTIONS (8)
  - Chest discomfort [Unknown]
  - Fatigue [Unknown]
  - Oropharyngeal pain [Recovering/Resolving]
  - Hypotension [Recovering/Resolving]
  - Dizziness [Recovering/Resolving]
  - Cough [Recovering/Resolving]
  - Hot flush [Recovering/Resolving]
  - Product use issue [Unknown]

NARRATIVE: CASE EVENT DATE: 20160630
